FAERS Safety Report 6469306-9 (Version None)
Quarter: 2009Q4

REPORT INFORMATION
  Report Type: 
  Country: None (occurrence: None)
  Receive Date: 20091203
  Receipt Date: 20071113
  Transmission Date: 20100525
  Serious: Yes (Hospitalization)
  Sender: FDA-Public Use
  Company Number: IN-ELI_LILLY_AND_COMPANY-IN200705001819

PATIENT
  Age: 57 Year
  Sex: Female

DRUGS (5)
  1. HUMULIN 70/30 [Suspect]
     Indication: DIABETES MELLITUS
     Dosage: UNK, UNKNOWN
     Route: 058
  2. HUMULIN 70/30 [Suspect]
     Dosage: 8 U, UNKNOWN
     Route: 058
     Dates: start: 20070501, end: 20070501
  3. HUMULIN 70/30 [Suspect]
     Dosage: 10 U, AT 6AM
     Route: 058
     Dates: start: 20070502, end: 20070502
  4. HUMULIN 70/30 [Suspect]
     Dosage: 10 U, AT 6PM
     Route: 058
     Dates: start: 20070502, end: 20070502
  5. HUMULIN 70/30 [Suspect]
     Dosage: 16 U, AT 6AM
     Route: 058
     Dates: start: 20070503, end: 20070503

REACTIONS (2)
  - ABSCESS [None]
  - DIABETES MELLITUS INADEQUATE CONTROL [None]
